FAERS Safety Report 24572066 (Version 1)
Quarter: 2024Q4

REPORT INFORMATION
  Report Type: Spontaneous
  Country: US (occurrence: US)
  Receive Date: 20241101
  Receipt Date: 20241101
  Transmission Date: 20250114
  Serious: No
  Sender: TEVA
  Company Number: US-TEVA-VS-3254146

PATIENT
  Age: 34 Year
  Sex: Female

DRUGS (1)
  1. VESTURA [Suspect]
     Active Substance: DROSPIRENONE\ETHINYL ESTRADIOL
     Indication: Product used for unknown indication
     Dosage: 3-0.02 MG-MG
     Route: 065
     Dates: start: 2019

REACTIONS (3)
  - Alopecia [Unknown]
  - Drug withdrawal syndrome [Not Recovered/Not Resolved]
  - Oral contraception [Not Recovered/Not Resolved]
